FAERS Safety Report 7959639-9 (Version None)
Quarter: 2011Q4

REPORT INFORMATION
  Report Type: 
  Country: None (occurrence: None)
  Receive Date: 20111206
  Receipt Date: 20111202
  Transmission Date: 20120403
  Serious: Yes (Death)
  Sender: FDA-Public Use
  Company Number: DE-ASTRAZENECA-2011SE71453

PATIENT

DRUGS (2)
  1. QUETIAPINE [Suspect]
     Route: 048
  2. CITALOPRAM [Suspect]
     Route: 048

REACTIONS (8)
  - CONVULSION [None]
  - OVERDOSE [None]
  - DELIRIUM [None]
  - SUICIDE ATTEMPT [None]
  - PULSELESS ELECTRICAL ACTIVITY [None]
  - VENTRICULAR TACHYCARDIA [None]
  - CARDIAC ARREST [None]
  - PNEUMONIA [None]
